FAERS Safety Report 16320108 (Version 1)
Quarter: 2019Q2

REPORT INFORMATION
  Report Type: Spontaneous
  Country: US (occurrence: US)
  Receive Date: 20190516
  Receipt Date: 20190516
  Transmission Date: 20190711
  Serious: No
  Sender: FDA-Public Use
  Company Number: US-HIKMA PHARMACEUTICALS USA INC.-US-H14001-18-08238

PATIENT
  Age: 70 Year
  Sex: Female

DRUGS (5)
  1. LOVASTATIN. [Concomitant]
     Active Substance: LOVASTATIN
     Indication: PRODUCT USED FOR UNKNOWN INDICATION
     Route: 048
  2. WARFARIN [Suspect]
     Active Substance: WARFARIN
     Indication: TRANSIENT ISCHAEMIC ATTACK
     Route: 048
     Dates: end: 2018
  3. LEVOTHYROXINE. [Concomitant]
     Active Substance: LEVOTHYROXINE
     Indication: PRODUCT USED FOR UNKNOWN INDICATION
     Route: 048
  4. PREDNISONE. [Suspect]
     Active Substance: PREDNISONE
     Indication: FUNGAL INFECTION
     Route: 065
     Dates: start: 201806, end: 2018
  5. WARFARIN [Suspect]
     Active Substance: WARFARIN
     Route: 048
     Dates: end: 2018

REACTIONS (2)
  - International normalised ratio abnormal [Recovered/Resolved]
  - Off label use [Recovered/Resolved]

NARRATIVE: CASE EVENT DATE: 201806
